FAERS Safety Report 10716777 (Version 1)
Quarter: 2015Q1

REPORT INFORMATION
  Report Type: Report from Study
  Country: AR (occurrence: AR)
  Receive Date: 20150116
  Receipt Date: 20150116
  Transmission Date: 20150721
  Serious: Yes (Other)
  Sender: FDA-Public Use
  Company Number: PHHY2015AR004984

PATIENT
  Sex: Male

DRUGS (2)
  1. TEGRETOL [Suspect]
     Active Substance: CARBAMAZEPINE
     Indication: CEREBROVASCULAR ACCIDENT
     Dosage: 2 DF, QD
     Route: 048
     Dates: start: 1972
  2. TEGRETOL [Suspect]
     Active Substance: CARBAMAZEPINE
     Indication: OFF LABEL USE

REACTIONS (3)
  - Product use issue [Unknown]
  - Hypertension [Recovered/Resolved]
  - Renal cancer [Recovered/Resolved]

NARRATIVE: CASE EVENT DATE: 1993
